FAERS Safety Report 11203247 (Version 1)
Quarter: 2015Q2

REPORT INFORMATION
  Report Type: Spontaneous
  Country: US (occurrence: None)
  Receive Date: 20150608
  Receipt Date: 20150608
  Transmission Date: 20150821
  Serious: No
  Sender: FDA-Public Use
  Company Number: HYP201504-000049

PATIENT
  Age: 9 Year
  Sex: Male

DRUGS (1)
  1. RAVICTI [Suspect]
     Active Substance: GLYCEROL PHENYLBUTYRATE
     Indication: ORNITHINE TRANSCARBAMOYLASE DEFICIENCY
     Dates: start: 201307

REACTIONS (3)
  - Disturbance in attention [None]
  - Psychomotor hyperactivity [None]
  - Rash [None]

NARRATIVE: CASE EVENT DATE: 20150424
